FAERS Safety Report 18529384 (Version 1)
Quarter: 2020Q4

REPORT INFORMATION
  Report Type: Spontaneous
  Country: ZA (occurrence: ZA)
  Receive Date: 20201120
  Receipt Date: 20201120
  Transmission Date: 20210114
  Serious: Yes (Other)
  Sender: FDA-Public Use
  Company Number: ZA-SA-2020SA327357

PATIENT

DRUGS (10)
  1. AMIODARONE HYDROCHLORIDE. [Interacting]
     Active Substance: AMIODARONE HYDROCHLORIDE
     Dosage: UNK
  2. LOPERAMIDE [Interacting]
     Active Substance: LOPERAMIDE
     Dosage: UNK
     Dates: start: 199811
  3. TETRACYCLINE HYDROCHLORIDE. [Interacting]
     Active Substance: TETRACYCLINE HYDROCHLORIDE
     Dosage: UNK
     Dates: start: 199811
  4. RANITIDINE. [Suspect]
     Active Substance: RANITIDINE
     Dosage: 150 MG
     Dates: start: 19981201
  5. CISAPRIDE [Interacting]
     Active Substance: CISAPRIDE
     Dosage: 10 MG
     Dates: start: 19981201, end: 19981207
  6. METOCLOPRAMIDE HYDROCHLORIDE. [Interacting]
     Active Substance: METOCLOPRAMIDE HYDROCHLORIDE
     Dosage: UNK
     Dates: start: 199811
  7. METRONIDAZOLE. [Interacting]
     Active Substance: METRONIDAZOLE
     Dosage: UNK
     Dates: start: 199811
  8. NITROFURANTOIN. [Interacting]
     Active Substance: NITROFURANTOIN
     Dosage: UNK
     Dates: start: 199811
  9. ONDANSETRON [Interacting]
     Active Substance: ONDANSETRON
     Dosage: UNK
     Dates: start: 199811
  10. SULFAMETHOXAZOLE/TRIMETHOPRIM [Interacting]
     Active Substance: SULFAMETHOXAZOLE\TRIMETHOPRIM
     Dosage: UNK
     Dates: start: 199811

REACTIONS (14)
  - Torsade de pointes [Recovered/Resolved]
  - Vomiting [Recovered/Resolved]
  - Gastrointestinal inflammation [Not Recovered/Not Resolved]
  - Drug interaction [Unknown]
  - Arrhythmia [Recovered/Resolved]
  - Conduction disorder [Not Recovered/Not Resolved]
  - Electrocardiogram QT prolonged [Recovered/Resolved]
  - Decreased appetite [Not Recovered/Not Resolved]
  - Ventricular tachyarrhythmia [Recovered/Resolved]
  - Bradyarrhythmia [Not Recovered/Not Resolved]
  - Therapeutic procedure [Not Recovered/Not Resolved]
  - Tachyarrhythmia [Not Recovered/Not Resolved]
  - Shock [Recovered/Resolved]
  - Nausea [Not Recovered/Not Resolved]

NARRATIVE: CASE EVENT DATE: 1998
